FAERS Safety Report 5269703-3 (Version None)
Quarter: 2007Q1

REPORT INFORMATION
  Report Type: 
  Country: None (occurrence: None)
  Receive Date: 20061214
  Receipt Date: 20060925
  Transmission Date: 20070707
  Serious: Yes (Hospitalization)
  Sender: FDA-Public Use
  Company Number: 2006118834

PATIENT
  Sex: Female

DRUGS (3)
  1. BEXTRA [Suspect]
     Dates: start: 20021220, end: 20030502
  2. CELEBREX [Suspect]
     Dates: start: 20020101, end: 20041021
  3. VIOXX [Concomitant]

REACTIONS (2)
  - DEEP VEIN THROMBOSIS [None]
  - PULMONARY EMBOLISM [None]
